FAERS Safety Report 12996856 (Version 1)
Quarter: 2016Q4

REPORT INFORMATION
  Report Type: Spontaneous
  Country: IT (occurrence: IT)
  Receive Date: 20161205
  Receipt Date: 20161205
  Transmission Date: 20170207
  Serious: Yes (Other)
  Sender: FDA-Public Use
  Company Number: IT-CIPLA LTD.-2016IT22779

PATIENT

DRUGS (4)
  1. GABAPENTIN. [Suspect]
     Active Substance: GABAPENTIN
     Indication: ANALGESIC THERAPY
     Dosage: 300 MG, QD, DAILY
     Route: 065
  2. PARACETAMOL [Suspect]
     Active Substance: ACETAMINOPHEN
     Indication: ANALGESIC THERAPY
     Dosage: UNK
     Route: 065
  3. VORICONAZOLE. [Suspect]
     Active Substance: VORICONAZOLE
     Indication: ANTIFUNGAL PROPHYLAXIS
     Dosage: UNK
     Route: 042
  4. CODEINE [Suspect]
     Active Substance: CODEINE
     Indication: ANALGESIC THERAPY
     Dosage: 30 MG, QD, DAILY
     Route: 065

REACTIONS (6)
  - Hallucination, visual [Unknown]
  - Cholestasis [Unknown]
  - Nervous system disorder [Unknown]
  - Psychomotor skills impaired [Unknown]
  - Hepatotoxicity [Unknown]
  - Hepatocellular injury [Unknown]
